FAERS Safety Report 23020252 (Version 1)
Quarter: 2023Q4

REPORT INFORMATION
  Report Type: Spontaneous
  Country: DE (occurrence: DE)
  Receive Date: 20231003
  Receipt Date: 20231003
  Transmission Date: 20240110
  Serious: Yes (Other)
  Sender: FDA-Public Use
  Company Number: DE-002147023-NVSC2023DE194986

PATIENT
  Age: 62 Year
  Sex: Female

DRUGS (6)
  1. IRON [Suspect]
     Active Substance: IRON
     Indication: Hypoferritinaemia
     Dosage: UNK
     Route: 065
  2. METHOTREXATE [Suspect]
     Active Substance: METHOTREXATE
     Indication: Product used for unknown indication
     Dosage: UNK (SYRINGE)
     Route: 065
  3. MYFORTIC [Suspect]
     Active Substance: MYCOPHENOLATE SODIUM
     Indication: Product used for unknown indication
     Dosage: 360 MG, BID (0-1-0-1)
     Route: 065
     Dates: start: 2021
  4. OPIPRAMOL [Suspect]
     Active Substance: OPIPRAMOL
     Indication: Product used for unknown indication
     Dosage: UNK
     Route: 065
  5. VITAMIN D3 [Concomitant]
     Active Substance: CHOLECALCIFEROL
     Indication: Product used for unknown indication
     Dosage: UNK, QD (STRENGTH 2000)
     Route: 065
  6. VITAMIN B12 [Concomitant]
     Active Substance: CYANOCOBALAMIN
     Indication: Product used for unknown indication
     Dosage: UNK, QD
     Route: 065

REACTIONS (19)
  - Pulmonary fibrosis [Unknown]
  - Chronic gastritis [Unknown]
  - Hyperhidrosis [Unknown]
  - Otitis media [Unknown]
  - Serum ferritin decreased [Recovering/Resolving]
  - Fatigue [Not Recovered/Not Resolved]
  - Hernia [Unknown]
  - Heart rate abnormal [Unknown]
  - Gastrointestinal disorder [Unknown]
  - Inflammation [Not Recovered/Not Resolved]
  - Feeling abnormal [Unknown]
  - Illness [Unknown]
  - Stress [Unknown]
  - Cystitis noninfective [Unknown]
  - Diaphragmalgia [Unknown]
  - Pain [Unknown]
  - Alopecia [Unknown]
  - Diarrhoea [Unknown]
  - Nausea [Unknown]

NARRATIVE: CASE EVENT DATE: 20210101
